FAERS Safety Report 7616761-4 (Version None)
Quarter: 2011Q3

REPORT INFORMATION
  Report Type: 
  Country: None (occurrence: None)
  Receive Date: 20110718
  Receipt Date: 20110707
  Transmission Date: 20111222
  Serious: Yes (Death, Hospitalization)
  Sender: FDA-Public Use
  Company Number: US-BIOGENIDEC-2011BI009297

PATIENT
  Age: 39 Year
  Sex: Female
  Weight: 74 kg

DRUGS (20)
  1. TRAZADONE (DESYREL) [Concomitant]
     Route: 048
     Dates: start: 20110114
  2. AVASTIN [Concomitant]
     Indication: GLIOMATOSIS CEREBRI
  3. AVONEX [Suspect]
     Indication: GLIOMATOSIS CEREBRI
     Route: 030
     Dates: end: 20110224
  4. AMARYL [Concomitant]
     Route: 048
  5. AVONEX [Suspect]
     Indication: MIXED OLIGO-ASTROCYTOMA
     Route: 030
     Dates: end: 20110224
  6. AVONEX [Suspect]
     Route: 030
     Dates: start: 20100723
  7. DECADRON [Concomitant]
     Route: 048
     Dates: start: 20101229
  8. PROZAC [Concomitant]
     Route: 048
     Dates: start: 20101229
  9. TYLENOL-500 [Concomitant]
     Route: 048
  10. AVONEX [Suspect]
     Route: 030
     Dates: start: 20100723
  11. LAMICTAL [Concomitant]
     Route: 048
     Dates: start: 20101229
  12. CALCIUM CARBONATE [Concomitant]
     Route: 048
  13. CHLORHEXIDINE (PERIDEX) [Concomitant]
     Route: 048
  14. DALTEPARIN (FRAGMIN) [Concomitant]
     Route: 058
     Dates: start: 20110204
  15. PROZAC [Concomitant]
     Route: 048
     Dates: start: 20101229
  16. NEURONTIN [Concomitant]
     Route: 048
     Dates: start: 20101229
  17. TOLTERODINE SA (DETROL LA) [Concomitant]
     Indication: HYPERTONIC BLADDER
     Route: 048
     Dates: start: 20101229
  18. AVASTIN [Concomitant]
     Indication: MIXED OLIGO-ASTROCYTOMA
  19. ONE A DAY WOMENS FORMULA TABLET [Concomitant]
  20. MULTIPLE VITAMIN (MUTIVITAMIN) [Concomitant]
     Route: 048

REACTIONS (6)
  - DEVICE RELATED INFECTION [None]
  - HEPATITIS [None]
  - ENCEPHALOPATHY [None]
  - GLIOBLASTOMA MULTIFORME [None]
  - STAPHYLOCOCCAL SEPSIS [None]
  - RESPIRATORY DISTRESS [None]
